FAERS Safety Report 7643616-1 (Version None)
Quarter: 2011Q3

REPORT INFORMATION
  Report Type: 
  Country: None (occurrence: None)
  Receive Date: 20110729
  Receipt Date: 20110718
  Transmission Date: 20111222
  Serious: Yes (Other)
  Sender: FDA-Public Use
  Company Number: PHHY2011DE64477

PATIENT
  Age: 65 Year
  Sex: Male

DRUGS (4)
  1. ZOMETA [Suspect]
     Indication: MULTIPLE MYELOMA
     Dosage: 1 DF, QW61D
     Route: 042
     Dates: start: 20021106, end: 20060618
  2. CHEMOTHERAPEUTICS [Concomitant]
  3. AREDIA [Suspect]
     Indication: MULTIPLE MYELOMA
     Dosage: 1 DF, QW61D
     Route: 042
     Dates: start: 20010109, end: 20020926
  4. IBANDRONATE SODIUM [Suspect]
     Dosage: UNK
     Dates: start: 20060814, end: 20060913

REACTIONS (3)
  - OSTEONECROSIS OF JAW [None]
  - PURULENCE [None]
  - SINUSITIS [None]
